FAERS Safety Report 5802167-7 (Version None)
Quarter: 2008Q3

REPORT INFORMATION
  Report Type: 
  Country: None (occurrence: None)
  Receive Date: 20080707
  Receipt Date: 20080625
  Transmission Date: 20090109
  Serious: Yes (Other)
  Sender: FDA-Public Use
  Company Number: US-PFIZER INC-2008029606

PATIENT
  Sex: Male
  Weight: 88.5 kg

DRUGS (10)
  1. LYRICA [Suspect]
     Indication: PAIN IN EXTREMITY
     Route: 048
  2. MOBIC [Concomitant]
  3. PRILOSEC [Concomitant]
  4. ALBUTEROL [Concomitant]
     Route: 055
  5. ZYRTEC [Concomitant]
  6. MONTELUKAST SODIUM [Concomitant]
  7. HYDROCODONE [Concomitant]
  8. XANAX [Concomitant]
  9. MAXALT [Concomitant]
     Indication: MIGRAINE
  10. ADDERALL 10 [Concomitant]

REACTIONS (9)
  - DRUG INEFFECTIVE [None]
  - HYPOAESTHESIA [None]
  - MUSCULAR WEAKNESS [None]
  - PAIN IN EXTREMITY [None]
  - PARAESTHESIA [None]
  - PERIPHERAL NERVE INJURY [None]
  - SELF INJURIOUS BEHAVIOUR [None]
  - UNEVALUABLE EVENT [None]
  - VISION BLURRED [None]
